FAERS Safety Report 24703478 (Version 1)
Quarter: 2024Q4

REPORT INFORMATION
  Report Type: Spontaneous
  Country: US (occurrence: US)
  Receive Date: 20241205
  Receipt Date: 20241205
  Transmission Date: 20250114
  Serious: No
  Sender: AILEX PHARMACEUTICALS LLC
  Company Number: AP-2024-US-6246

PATIENT
  Sex: Female

DRUGS (1)
  1. CROMOLYN SODIUM [Suspect]
     Active Substance: CROMOLYN SODIUM
     Indication: Mast cell activation syndrome
     Dosage: 100G/ 5ML, QID
     Route: 048

REACTIONS (2)
  - Product availability issue [Unknown]
  - Product substitution issue [Unknown]
